FAERS Safety Report 7284035-X (Version None)
Quarter: 2011Q1

REPORT INFORMATION
  Report Type: 
  Country: None (occurrence: None)
  Receive Date: 20110209
  Receipt Date: 20101227
  Transmission Date: 20110831
  Serious: Yes (Death, Hospitalization)
  Sender: FDA-Public Use
  Company Number: US-BAXTER-2008BH001625

PATIENT
  Sex: Male
  Weight: 83 kg

DRUGS (4)
  1. LANTUS [Concomitant]
     Indication: DIABETES MELLITUS
     Route: 065
     Dates: end: 20080201
  2. FOSRENAL [Concomitant]
     Indication: RENAL FAILURE CHRONIC
     Route: 048
     Dates: end: 20080201
  3. HUMALOG [Concomitant]
     Indication: DIABETES MELLITUS
     Route: 058
     Dates: end: 20080201
  4. HEPARIN SODIUM INJECTION [Suspect]
     Indication: PROPHYLAXIS
     Route: 033
     Dates: start: 20060401, end: 20080201

REACTIONS (5)
  - DIABETES MELLITUS [None]
  - HYPOTENSION [None]
  - ABDOMINAL PAIN UPPER [None]
  - RENAL FAILURE CHRONIC [None]
  - DIARRHOEA [None]
